FAERS Safety Report 13473054 (Version 5)
Quarter: 2017Q3

REPORT INFORMATION
  Report Type: Spontaneous
  Country: KR (occurrence: KR)
  Receive Date: 20170424
  Receipt Date: 20170804
  Transmission Date: 20171127
  Serious: Yes (Other)
  Sender: FDA-Public Use
  Company Number: KR-009507513-1605KOR014626

PATIENT
  Age: 56 Year
  Sex: Female
  Weight: 70.2 kg

DRUGS (24)
  1. EMEND (FOSAPREPITANT DIMEGLUMINE) [Suspect]
     Active Substance: FOSAPREPITANT DIMEGLUMINE
     Dosage: 150 MG, ONCE
     Route: 042
     Dates: start: 20160520, end: 20160520
  2. MABTHERA [Concomitant]
     Active Substance: RITUXIMAB
     Indication: CHEMOTHERAPY
     Dosage: 630 MG, ONCE, CYCLE 3
     Route: 042
     Dates: start: 20160406, end: 20160406
  3. MABTHERA [Concomitant]
     Active Substance: RITUXIMAB
     Dosage: 630 MG, ONCE, CYCLE 4
     Route: 042
     Dates: start: 20160406, end: 20160406
  4. ENDOXAN [Concomitant]
     Active Substance: CYCLOPHOSPHAMIDE
     Dosage: 1250 MG, ONCE, CYCLE 6, ONCE
     Route: 042
     Dates: start: 20160520, end: 20160520
  5. ADRIAMYCIN [Concomitant]
     Active Substance: DOXORUBICIN HYDROCHLORIDE
     Dosage: 84 MG, ONCE, CYCLE 4
     Route: 042
     Dates: start: 20160406, end: 20160406
  6. VINCRAN [Concomitant]
     Dosage: 2 MG, ONCE, CYCLE 6
     Route: 042
     Dates: start: 20160520, end: 20160520
  7. EMEND (FOSAPREPITANT DIMEGLUMINE) [Suspect]
     Active Substance: FOSAPREPITANT DIMEGLUMINE
     Dosage: 150 MG, ONCE
     Route: 042
     Dates: start: 20160406, end: 20160406
  8. ENDOXAN [Concomitant]
     Active Substance: CYCLOPHOSPHAMIDE
     Indication: CHEMOTHERAPY
     Dosage: 1250 MG, ONCE, CYCLE 3, ONCE
     Route: 042
     Dates: start: 20160317, end: 20160317
  9. ALOXI [Concomitant]
     Active Substance: PALONOSETRON HYDROCHLORIDE
     Dosage: 0.25 MG, ONCE
     Route: 042
     Dates: start: 20160428, end: 20160428
  10. EMEND (FOSAPREPITANT DIMEGLUMINE) [Suspect]
     Active Substance: FOSAPREPITANT DIMEGLUMINE
     Indication: PROPHYLAXIS OF NAUSEA AND VOMITING
     Dosage: 150 MG, ONCE
     Route: 042
     Dates: start: 20160317, end: 20160317
  11. EMEND (FOSAPREPITANT DIMEGLUMINE) [Suspect]
     Active Substance: FOSAPREPITANT DIMEGLUMINE
     Dosage: 150 MG, ONCE
     Route: 042
     Dates: start: 20160428, end: 20160428
  12. ADRIAMYCIN [Concomitant]
     Active Substance: DOXORUBICIN HYDROCHLORIDE
     Dosage: 84 MG, ONCE, CYCLE 6
     Route: 042
     Dates: start: 20160520, end: 20160520
  13. NEULASTA [Concomitant]
     Active Substance: PEGFILGRASTIM
     Indication: PROPHYLAXIS
     Dosage: 6 MG, QD (FORMULATION: PREFILLED SYRINGE)
     Route: 058
     Dates: start: 20160319, end: 20160521
  14. ALOXI [Concomitant]
     Active Substance: PALONOSETRON HYDROCHLORIDE
     Indication: PROPHYLAXIS OF NAUSEA AND VOMITING
     Dosage: 0.25 MG, ONCE
     Route: 042
     Dates: start: 20160406, end: 20160406
  15. ADRIAMYCIN [Concomitant]
     Active Substance: DOXORUBICIN HYDROCHLORIDE
     Dosage: 84 MG, ONCE, CYCLE 5
     Route: 042
     Dates: start: 20160428, end: 20160428
  16. VINCRAN [Concomitant]
     Indication: CHEMOTHERAPY
     Dosage: 2 MG, ONCE, CYCLE 3
     Route: 042
     Dates: start: 20160317, end: 20160317
  17. MABTHERA [Concomitant]
     Active Substance: RITUXIMAB
     Dosage: 630 MG, ONCE, CYCLE 5
     Route: 042
     Dates: start: 20160428, end: 20160428
  18. MABTHERA [Concomitant]
     Active Substance: RITUXIMAB
     Dosage: 630 MG, ONCE, CYCLE 6
     Route: 042
     Dates: start: 20160520, end: 20160520
  19. ENDOXAN [Concomitant]
     Active Substance: CYCLOPHOSPHAMIDE
     Dosage: 1250 MG, ONCE, CYCLE 4, ONCE
     Route: 042
     Dates: start: 20160406, end: 20160406
  20. ENDOXAN [Concomitant]
     Active Substance: CYCLOPHOSPHAMIDE
     Dosage: 1250 MG, ONCE, CYCLE 5, ONCE
     Route: 042
     Dates: start: 20160428, end: 20160428
  21. ADRIAMYCIN [Concomitant]
     Active Substance: DOXORUBICIN HYDROCHLORIDE
     Indication: CHEMOTHERAPY
     Dosage: 84 MG, ONCE, CYCLE 3
     Route: 042
     Dates: start: 20160317, end: 20160317
  22. VINCRAN [Concomitant]
     Dosage: 2 MG, ONCE, CYCLE 4
     Route: 042
     Dates: start: 20160406, end: 20160406
  23. VINCRAN [Concomitant]
     Dosage: 2 MG, ONCE, CYCLE 5
     Route: 042
     Dates: start: 20160428, end: 20160428
  24. ALOXI [Concomitant]
     Active Substance: PALONOSETRON HYDROCHLORIDE
     Dosage: 0.25 MG, ONCE
     Route: 042
     Dates: start: 20160520, end: 20160520

REACTIONS (1)
  - Paraesthesia [Recovered/Resolved]

NARRATIVE: CASE EVENT DATE: 20160406
